FAERS Safety Report 7645678-4 (Version None)
Quarter: 2011Q3

REPORT INFORMATION
  Report Type: 
  Country: None (occurrence: None)
  Receive Date: 20110729
  Receipt Date: 20110726
  Transmission Date: 20111222
  Serious: Yes (Hospitalization, Other)
  Sender: FDA-Public Use
  Company Number: JP-ABBOTT-11P-087-0719175-00

PATIENT
  Sex: Female
  Weight: 41.3 kg

DRUGS (7)
  1. LOXONIN [Concomitant]
     Indication: NASOPHARYNGITIS
     Dosage: 180 MG DAILY
     Route: 048
     Dates: start: 20110409, end: 20110413
  2. AMLODIPINE [Concomitant]
     Indication: HYPERTENSION
     Route: 048
  3. RESPLEN [Concomitant]
     Indication: NASOPHARYNGITIS
     Dosage: 60 MG DAILY
     Route: 048
     Dates: start: 20110409, end: 20110413
  4. CILOSTAZOL [Concomitant]
     Indication: PRODUCT USED FOR UNKNOWN INDICATION
     Route: 048
  5. CLARITHROMYCIN [Suspect]
     Indication: NASOPHARYNGITIS
     Route: 048
     Dates: start: 20110409, end: 20110413
  6. MUCOSIL-10 [Concomitant]
     Indication: NASOPHARYNGITIS
     Dosage: 45 MG DAILY
     Route: 048
     Dates: start: 20110409, end: 20110413
  7. MUCOSTA [Concomitant]
     Indication: NASOPHARYNGITIS
     Dosage: 300 MG DAILY
     Route: 048
     Dates: start: 20110409, end: 20110413

REACTIONS (7)
  - DELUSION [None]
  - MYOCLONUS [None]
  - HALLUCINATION [None]
  - RESTLESSNESS [None]
  - ALCOHOL ABUSE [None]
  - AGITATION [None]
  - INCORRECT DOSE ADMINISTERED [None]
